FAERS Safety Report 4302402-0 (Version None)
Quarter: 2004Q1

REPORT INFORMATION
  Report Type: 
  Country: None (occurrence: None)
  Receive Date: 20040223
  Receipt Date: 20040223
  Transmission Date: 20041129
  Serious: Yes (Hospitalization)
  Sender: FDA-Public Use
  Company Number: None

PATIENT
  Age: 22 Year
  Sex: Female
  Weight: 55.7924 kg

DRUGS (1)
  1. EFFEXOR [Suspect]
     Indication: ANXIETY
     Dosage: 150 MG XR
     Dates: start: 20030501, end: 20040201

REACTIONS (6)
  - DISORIENTATION [None]
  - DIZZINESS [None]
  - HEADACHE [None]
  - NAUSEA [None]
  - PARAESTHESIA [None]
  - VOMITING [None]
